FAERS Safety Report 14665457 (Version 1)
Quarter: 2018Q1

REPORT INFORMATION
  Report Type: Spontaneous
  Country: CA (occurrence: CA)
  Receive Date: 20180321
  Receipt Date: 20180321
  Transmission Date: 20180509
  Serious: Yes (Other)
  Sender: FDA-Public Use
  Company Number: CA-BAYER-2018-051361

PATIENT
  Age: 30 Year
  Sex: Female
  Weight: 80.27 kg

DRUGS (3)
  1. MIRENA [Suspect]
     Active Substance: LEVONORGESTREL
     Indication: CONTRACEPTION
     Dosage: 20 MCG/24HR, CONT
     Route: 015
  2. SEROQUEL [Concomitant]
     Active Substance: QUETIAPINE FUMARATE
  3. EFFEXOR [Concomitant]
     Active Substance: VENLAFAXINE HYDROCHLORIDE

REACTIONS (11)
  - Asthenia [Recovering/Resolving]
  - Dysphemia [Recovering/Resolving]
  - Hypotonia [Recovering/Resolving]
  - Paraesthesia [Recovering/Resolving]
  - Crying [Recovering/Resolving]
  - Emotional disorder [Recovering/Resolving]
  - Gait disturbance [Recovering/Resolving]
  - Irritability [Recovering/Resolving]
  - Speech disorder [Recovering/Resolving]
  - Depressive symptom [Recovering/Resolving]
  - Fatigue [Recovering/Resolving]
